FAERS Safety Report 7922040-8 (Version None)
Quarter: 2011Q4

REPORT INFORMATION
  Report Type: 
  Country: None (occurrence: None)
  Receive Date: 20111117
  Receipt Date: 20111108
  Transmission Date: 20120403
  Serious: Yes (Other)
  Sender: FDA-Public Use
  Company Number: US-ASTRAZENECA-2010SE46628

PATIENT
  Age: 62 Year
  Sex: Male

DRUGS (23)
  1. CRESTOR [Suspect]
     Indication: BLOOD CHOLESTEROL ABNORMAL
     Route: 048
  2. NIASPAN [Concomitant]
     Indication: BLOOD CHOLESTEROL ABNORMAL
  3. LORAZEPAM [Concomitant]
     Indication: BACK INJURY
  4. PROVIGIL [Concomitant]
     Indication: INITIAL INSOMNIA
  5. VITAMIN D [Concomitant]
     Indication: HYPOVITAMINOSIS
  6. OXYCODONE HCL [Concomitant]
     Indication: PAIN
  7. LORAZEPAM [Concomitant]
     Indication: HYPOAESTHESIA
  8. LIDOCONAINE [Concomitant]
     Indication: ANALGESIC THERAPY
  9. LORAZEPAM [Concomitant]
     Indication: PARAESTHESIA
  10. CLONAZEPAM [Concomitant]
     Indication: PSYCHOMOTOR HYPERACTIVITY
  11. UROCIT-K [Concomitant]
  12. ALLOPURINOL [Concomitant]
  13. LORATADINE [Concomitant]
     Indication: HYPERSENSITIVITY
  14. AMLODIPINE BISULFATE [Concomitant]
  15. ISOSORBIDE MONONITRATE [Concomitant]
     Indication: ANGINA PECTORIS
  16. PANTOPRAZOLE [Concomitant]
     Indication: GASTRIC DISORDER
  17. LOVAZA [Concomitant]
     Indication: HYPOVITAMINOSIS
     Dosage: EVENING
  18. PLAVIX [Concomitant]
     Indication: CARDIAC DISORDER
  19. PLAVIX [Concomitant]
     Indication: ANTICOAGULANT THERAPY
  20. PROVIGIL [Concomitant]
     Indication: NARCOLEPSY
  21. ECOTRIM [Concomitant]
     Indication: CARDIAC DISORDER
  22. PATANASE [Concomitant]
     Indication: MULTIPLE ALLERGIES
     Dosage: 2 SPRAYS DAILY
  23. POTASSIUM CL [Concomitant]
     Indication: BLOOD POTASSIUM DECREASED

REACTIONS (3)
  - MUSCULOSKELETAL DISORDER [None]
  - THROMBOSIS [None]
  - NEUROPATHY PERIPHERAL [None]
